FAERS Safety Report 4946816-4 (Version None)
Quarter: 2006Q1

REPORT INFORMATION
  Report Type: 
  Country: None (occurrence: None)
  Receive Date: 20060317
  Receipt Date: 20050406
  Transmission Date: 20060701
  Serious: Yes (Hospitalization)
  Sender: FDA-Public Use
  Company Number: US-MERCK-0504USA01014

PATIENT
  Age: 66 Year
  Sex: Female
  Weight: 78 kg

DRUGS (13)
  1. VIOXX [Suspect]
     Indication: ARTHRITIS
     Route: 048
     Dates: start: 19990101, end: 20040101
  2. PLAVIX [Concomitant]
     Route: 065
  3. NITRO [Concomitant]
     Route: 065
  4. METOPROLOL [Concomitant]
     Route: 065
  5. LISINOPRIL [Concomitant]
     Route: 065
  6. ASPIRIN [Concomitant]
     Route: 065
  7. ISORDIL [Concomitant]
     Route: 065
  8. PREVACID [Concomitant]
     Route: 065
  9. ZOCOR [Concomitant]
     Route: 048
  10. VICODIN [Concomitant]
     Route: 065
  11. LOVENOX [Concomitant]
     Route: 065
  12. ULTRAM [Concomitant]
     Route: 065
  13. TYLENOL (CAPLET) [Concomitant]
     Route: 065

REACTIONS (7)
  - ACUTE MYOCARDIAL INFARCTION [None]
  - CORONARY ARTERY DISEASE [None]
  - GASTROOESOPHAGEAL REFLUX DISEASE [None]
  - HYPERCHOLESTEROLAEMIA [None]
  - HYPERTENSION [None]
  - MENISCUS LESION [None]
  - OSTEOARTHRITIS [None]
